FAERS Safety Report 7633860-1 (Version None)
Quarter: 2011Q3

REPORT INFORMATION
  Report Type: 
  Country: None (occurrence: None)
  Receive Date: 20110725
  Receipt Date: 20110715
  Transmission Date: 20111222
  Serious: Yes (Hospitalization)
  Sender: FDA-Public Use
  Company Number: AR-ABBOTT-11P-007-0836242-00

PATIENT
  Sex: Female
  Weight: 39.6 kg

DRUGS (4)
  1. RITONAVIR [Suspect]
     Route: 048
     Dates: start: 20110705
  2. DARUNAVIR ETHANOLATE [Concomitant]
     Indication: HIV INFECTION
     Route: 048
     Dates: start: 20110330, end: 20110703
  3. DARUNAVIR ETHANOLATE [Concomitant]
     Route: 048
     Dates: start: 20110705
  4. RITONAVIR [Suspect]
     Indication: HIV INFECTION
     Route: 048
     Dates: start: 20110330, end: 20110703

REACTIONS (1)
  - SUICIDE ATTEMPT [None]
